FAERS Safety Report 8776378 (Version 4)
Quarter: 2013Q1

REPORT INFORMATION
  Report Type: Spontaneous
  Country: CA (occurrence: CA)
  Receive Date: 20120910
  Receipt Date: 20130115
  Transmission Date: 20140127
  Serious: Yes (Death, Hospitalization, Other)
  Sender: FDA-Public Use
  Company Number: PHHY2012CA078132

PATIENT
  Sex: Male

DRUGS (3)
  1. EXJADE [Suspect]
     Indication: MYELODYSPLASTIC SYNDROME
     Dosage: 4000 MG, UNK
     Route: 048
  2. EXJADE [Suspect]
     Indication: IRON OVERLOAD
     Dosage: 3000 MG, QD
  3. PREDNISONE [Concomitant]

REACTIONS (11)
  - Death [Fatal]
  - Pneumonia [Recovered/Resolved]
  - Infection [Recovered/Resolved]
  - Kidney infection [Recovered/Resolved]
  - Paralysis [Unknown]
  - Sensory loss [Unknown]
  - Faeces discoloured [Unknown]
  - Influenza [Unknown]
  - Dyspnoea [Unknown]
  - Asthenia [Unknown]
  - Fatigue [Unknown]
